FAERS Safety Report 9304620 (Version 2)
Quarter: 2013Q2

REPORT INFORMATION
  Report Type: Report from Study
  Country: FR (occurrence: FR)
  Receive Date: 20130523
  Receipt Date: 20130611
  Transmission Date: 20140414
  Serious: Yes (Hospitalization)
  Sender: FDA-Public Use
  Company Number: FR-ROCHE-1227965

PATIENT
  Age: 78 Year
  Sex: Male

DRUGS (10)
  1. LUCENTIS [Suspect]
     Indication: AGE-RELATED MACULAR DEGENERATION
     Route: 050
     Dates: start: 201109
  2. LUCENTIS [Suspect]
     Route: 050
     Dates: start: 201110
  3. LUCENTIS [Suspect]
     Route: 050
     Dates: start: 201111
  4. LUCENTIS [Suspect]
     Route: 050
     Dates: start: 201112
  5. LUCENTIS [Suspect]
     Route: 050
     Dates: start: 20120314
  6. LUCENTIS [Suspect]
     Route: 050
     Dates: start: 201207
  7. LUCENTIS [Suspect]
     Route: 050
     Dates: start: 201210
  8. LUCENTIS [Suspect]
     Route: 050
     Dates: start: 201302
  9. LUCENTIS [Suspect]
     Route: 050
     Dates: start: 201304
  10. LUCENTIS [Suspect]
     Route: 050

REACTIONS (1)
  - Myocardial infarction [Recovered/Resolved with Sequelae]
